FAERS Safety Report 18807518 (Version 1)
Quarter: 2021Q1

REPORT INFORMATION
  Report Type: Spontaneous
  Country: US (occurrence: US)
  Receive Date: 20210129
  Receipt Date: 20210129
  Transmission Date: 20210419
  Serious: No
  Sender: FDA-Public Use
  Company Number: US-GLAXOSMITHKLINE-US2021AMR014257

PATIENT
  Sex: Male

DRUGS (1)
  1. BENLYSTA [Suspect]
     Active Substance: BELIMUMAB
     Indication: SYSTEMIC LUPUS ERYTHEMATOSUS
     Dosage: UNK, EVERY 4 WEEKS
     Route: 042
     Dates: start: 2013

REACTIONS (5)
  - Therapeutic product effect delayed [Recovered/Resolved]
  - Fatigue [Unknown]
  - Osteoporosis [Unknown]
  - Malaise [Unknown]
  - Ear disorder [Unknown]
